FAERS Safety Report 5082843-7 (Version None)
Quarter: 2006Q3

REPORT INFORMATION
  Report Type: 
  Country: None (occurrence: None)
  Receive Date: 20060817
  Receipt Date: 20060807
  Transmission Date: 20061208
  Serious: Yes (Hospitalization)
  Sender: FDA-Public Use
  Company Number: FR-ABBOTT-06P-056-0339811-00

PATIENT
  Age: 45 Year
  Sex: Female

DRUGS (5)
  1. DEPAKENE [Suspect]
     Indication: EPILEPSY
     Route: 048
     Dates: start: 20020101
  2. DEPAKENE [Suspect]
  3. DIAZEPAM [Suspect]
     Indication: DYSTHYMIC DISORDER
     Route: 048
  4. METOPROLOL TARTRATE [Suspect]
     Indication: DRUG USE FOR UNKNOWN INDICATION
     Route: 048
  5. LEVETIRACETAM [Suspect]
     Indication: EPILEPSY
     Route: 048
     Dates: start: 20050101

REACTIONS (6)
  - DEPRESSED LEVEL OF CONSCIOUSNESS [None]
  - IIIRD NERVE DISORDER [None]
  - STATUS EPILEPTICUS [None]
  - VITAMIN B1 DECREASED [None]
  - VITAMIN B6 DECREASED [None]
  - WERNICKE'S ENCEPHALOPATHY [None]
